FAERS Safety Report 20578724 (Version 6)
Quarter: 2022Q3

REPORT INFORMATION
  Report Type: Spontaneous
  Country: JP (occurrence: JP)
  Receive Date: 20220310
  Receipt Date: 20220903
  Transmission Date: 20221026
  Serious: Yes (Life-Threatening, Hospitalization, Other)
  Sender: FDA-Public Use
  Company Number: JP-AMGEN-JPNSP2022038515

PATIENT
  Age: 73 Year
  Sex: Female
  Weight: 49 kg

DRUGS (17)
  1. BLINCYTO [Suspect]
     Active Substance: BLINATUMOMAB
     Indication: Acute lymphocytic leukaemia
     Dosage: 9 MICROGRAM, QD
     Route: 041
     Dates: start: 20220210, end: 20220216
  2. BLINCYTO [Suspect]
     Active Substance: BLINATUMOMAB
     Dosage: 28 MICROGRAM, QD
     Route: 041
     Dates: start: 20220217
  3. FILGRASTIM [Concomitant]
     Active Substance: FILGRASTIM
     Dosage: 150 MICROGRAM, QD
     Dates: start: 20220211, end: 20220218
  4. FILGRASTIM [Concomitant]
     Active Substance: FILGRASTIM
     Dosage: 150 MICROGRAM, QD
     Dates: start: 20220222, end: 20220227
  5. PONATINIB [Concomitant]
     Active Substance: PONATINIB
     Dosage: UNK
  6. FUROSEMIDE [Concomitant]
     Active Substance: FUROSEMIDE
     Dosage: 20 MILLIGRAM, BID
     Dates: start: 20220212, end: 20220214
  7. FUROSEMIDE [Concomitant]
     Active Substance: FUROSEMIDE
     Dosage: 20 MILLIGRAM, QD
     Dates: start: 20220218, end: 20220221
  8. CEFOZOPRAN HYDROCHLORIDE [Concomitant]
     Active Substance: CEFOZOPRAN HYDROCHLORIDE
     Dosage: 2 GRAM, BID
     Route: 042
     Dates: start: 20220215, end: 20220218
  9. AMITIZA [Concomitant]
     Active Substance: LUBIPROSTONE
     Dosage: 24 MICROGRAM, BID
     Dates: start: 20220210, end: 20220216
  10. MOVICOL [Concomitant]
     Active Substance: POLYETHYLENE GLYCOL 3350\POTASSIUM CHLORIDE\SODIUM BICARBONATE\SODIUM CHLORIDE
     Dosage: 2 PACKAGES, QD
     Dates: start: 20220210
  11. SULFAMETHOXAZOLE\TRIMETHOPRIM [Concomitant]
     Active Substance: SULFAMETHOXAZOLE\TRIMETHOPRIM
     Dosage: 1 TABLET, QD
     Dates: start: 20220210
  12. ACYCLOVIR [Concomitant]
     Active Substance: ACYCLOVIR
     Dosage: 200 MILLIGRAM, QD
     Dates: start: 20220210
  13. ITRACONAZOLE [Concomitant]
     Active Substance: ITRACONAZOLE
     Dosage: 20 MILLILITER, QD
     Route: 048
     Dates: start: 20220210, end: 20220302
  14. FEBUXOSTAT [Concomitant]
     Active Substance: FEBUXOSTAT
     Dosage: 3 TABLETS, QD
     Dates: start: 20220209, end: 20220302
  15. LEVOFLOXACIN [Concomitant]
     Active Substance: LEVOFLOXACIN
     Dosage: 500 MILLIGRAM, QD
     Dates: start: 20220210, end: 20220216
  16. ICLUSIG [Concomitant]
     Active Substance: PONATINIB
     Dosage: 15 MILLIGRAM, QD
     Dates: start: 20220222, end: 20220224
  17. ICLUSIG [Concomitant]
     Active Substance: PONATINIB
     Dosage: 15 MILLIGRAM, QD
     Dates: start: 20220304, end: 20220317

REACTIONS (3)
  - Disseminated intravascular coagulation [Recovered/Resolved]
  - Erythema multiforme [Recovered/Resolved]
  - Neutrophil count decreased [Recovered/Resolved]

NARRATIVE: CASE EVENT DATE: 20220211
